FAERS Safety Report 5686310-9 (Version None)
Quarter: 2008Q1

REPORT INFORMATION
  Report Type: 
  Country: None (occurrence: None)
  Receive Date: 20080328
  Receipt Date: 20070809
  Transmission Date: 20080703
  Serious: No
  Sender: FDA-Public Use
  Company Number: US-BAYER-US-2007-029732

PATIENT
  Age: 26 Year
  Sex: Female
  Weight: 58 kg

DRUGS (4)
  1. MIRENA [Suspect]
     Indication: CONTRACEPTION
     Route: 015
     Dates: start: 20070525
  2. CLARINEX /USA/ [Concomitant]
  3. VALTREX [Concomitant]
  4. ULTRAM [Concomitant]

REACTIONS (3)
  - ABDOMINAL PAIN [None]
  - GENITAL HAEMORRHAGE [None]
  - PROCEDURAL PAIN [None]
